FAERS Safety Report 6762520-4 (Version None)
Quarter: 2010Q2

REPORT INFORMATION
  Report Type: 
  Country: None (occurrence: None)
  Receive Date: 20100609
  Receipt Date: 20100607
  Transmission Date: 20101027
  Serious: Yes (Life-Threatening)
  Sender: FDA-Public Use
  Company Number: DK-ASTRAZENECA-2010SE13843

PATIENT
  Age: 19372 Day
  Sex: Male
  Weight: 78 kg

DRUGS (9)
  1. SEROQUEL [Suspect]
     Indication: DEPRESSION
     Dosage: 100 MG, DOSES: 0,5+0,5 +0,5+1
     Route: 048
     Dates: start: 20100318
  2. SEROQUEL [Interacting]
     Route: 048
  3. OMEPRAZOLE [Interacting]
     Indication: DYSPEPSIA
     Route: 048
     Dates: start: 20080515, end: 20100323
  4. ZOLOFT [Interacting]
     Indication: DEPRESSION
     Route: 048
     Dates: start: 20100318
  5. ZOLOFT [Interacting]
     Route: 048
  6. SIMVASTATIN [Concomitant]
  7. LOCOID [Concomitant]
     Route: 003
  8. LINK [Concomitant]
     Dosage: 150 MG/ML
     Route: 048
  9. LINK [Concomitant]
     Dosage: LINK MIXTURE 10 ML IF NEEDED

REACTIONS (2)
  - CARDIAC ARREST [None]
  - DRUG INTERACTION [None]
